FAERS Safety Report 6109525-4 (Version None)
Quarter: 2009Q1

REPORT INFORMATION
  Report Type: 
  Country: None (occurrence: None)
  Receive Date: 20090310
  Receipt Date: 20090303
  Transmission Date: 20090719
  Serious: Yes (Death)
  Sender: FDA-Public Use
  Company Number: FR-TEVA-184632ISR

PATIENT
  Sex: Female

DRUGS (6)
  1. METHOTREXATE [Suspect]
     Dates: start: 20081028, end: 20081028
  2. MORPHINE [Concomitant]
     Dates: start: 20081028
  3. ALPRAZOLAM [Concomitant]
     Dates: start: 20081028
  4. ONDANSETRON HYDROCHLORIDE [Concomitant]
     Dates: start: 20081028
  5. ETOPOSIDE [Concomitant]
  6. CISPLATIN [Concomitant]

REACTIONS (7)
  - ALTERED STATE OF CONSCIOUSNESS [None]
  - HEPATOTOXICITY [None]
  - MULTI-ORGAN FAILURE [None]
  - PANCYTOPENIA [None]
  - RENAL FAILURE [None]
  - SEPTIC SHOCK [None]
  - SKIN TOXICITY [None]
